FAERS Safety Report 6567724-1 (Version None)
Quarter: 2010Q1

REPORT INFORMATION
  Report Type: 
  Country: None (occurrence: None)
  Receive Date: 20100203
  Receipt Date: 20100122
  Transmission Date: 20100710
  Serious: Yes (Life-Threatening, Hospitalization)
  Sender: FDA-Public Use
  Company Number: FR-PFIZER INC-2010009630

PATIENT
  Age: 22 Year

DRUGS (2)
  1. SOMATROPIN [Suspect]
     Indication: HYPOPITUITARISM
     Dosage: 0.8 MG, 1X/DAY
     Dates: start: 20070410
  2. LEVOTHYROXINE SODIUM [Concomitant]
     Dosage: 175 UG, 1X/DAY
     Route: 048
     Dates: start: 20070110

REACTIONS (1)
  - DIABETIC KETOACIDOSIS [None]
